FAERS Safety Report 5910171-3 (Version None)
Quarter: 2008Q4

REPORT INFORMATION
  Report Type: 
  Country: None (occurrence: None)
  Receive Date: 20081007
  Receipt Date: 20070926
  Transmission Date: 20090506
  Serious: No
  Sender: FDA-Public Use
  Company Number: US-ASTRAZENECA-2007UW22408

PATIENT
  Age: 69 Year
  Sex: Female
  Weight: 67.1 kg

DRUGS (7)
  1. ARIMIDEX [Suspect]
     Indication: BREAST CANCER
     Route: 048
     Dates: start: 20060601
  2. AVENEX [Concomitant]
     Indication: MULTIPLE SCLEROSIS
  3. ENALAPRIL MALEATE [Concomitant]
  4. TYLENOL (CAPLET) [Concomitant]
  5. MULTI-VITAMIN [Concomitant]
  6. CALCIUM [Concomitant]
  7. VITAMIN D [Concomitant]

REACTIONS (9)
  - BLOOD PRESSURE INCREASED [None]
  - CARDIAC DISORDER [None]
  - COUGH [None]
  - DEPRESSION [None]
  - JOINT STIFFNESS [None]
  - OEDEMA PERIPHERAL [None]
  - PAIN IN EXTREMITY [None]
  - URINARY TRACT INFECTION [None]
  - WEIGHT INCREASED [None]
